FAERS Safety Report 6656270-2 (Version None)
Quarter: 2010Q1

REPORT INFORMATION
  Report Type: 
  Country: None (occurrence: None)
  Receive Date: 20100326
  Receipt Date: 20100326
  Transmission Date: 20100710
  Serious: Yes (Life-Threatening, Hospitalization, Other)
  Sender: FDA-Public Use
  Company Number: None

PATIENT
  Age: 20 Year
  Sex: Female
  Weight: 49.8957 kg

DRUGS (1)
  1. MEFLOQUINE HCL [Suspect]
     Indication: MALARIA
     Dosage: 1 PILL ONCE A WEEK PO
     Route: 048
     Dates: start: 20090101, end: 20090415

REACTIONS (25)
  - ABASIA [None]
  - ABNORMAL DREAMS [None]
  - AMNESIA [None]
  - APHASIA [None]
  - ARRHYTHMIA [None]
  - CONFUSIONAL STATE [None]
  - CONVULSION [None]
  - DISORIENTATION [None]
  - DIZZINESS [None]
  - DYSPNOEA [None]
  - EDUCATIONAL PROBLEM [None]
  - FATIGUE [None]
  - HALLUCINATION [None]
  - HYPERSOMNIA [None]
  - IMPAIRED WORK ABILITY [None]
  - INSOMNIA [None]
  - LUNG DISORDER [None]
  - MALAISE [None]
  - METAMORPHOPSIA [None]
  - PALPITATIONS [None]
  - PARAESTHESIA [None]
  - PARANOIA [None]
  - SUICIDAL IDEATION [None]
  - THINKING ABNORMAL [None]
  - TREMOR [None]
